FAERS Safety Report 10345691 (Version 3)
Quarter: 2014Q3

REPORT INFORMATION
  Report Type: Report from Study
  Country: US (occurrence: US)
  Receive Date: 20140728
  Receipt Date: 20140919
  Transmission Date: 20150326
  Serious: Yes (Hospitalization)
  Sender: FDA-Public Use
  Company Number: US-SANOFI-AVENTIS-2013SA078027

PATIENT
  Age: 66 Year
  Sex: Female

DRUGS (1)
  1. AUBAGIO [Suspect]
     Active Substance: TERIFLUNOMIDE
     Indication: MULTIPLE SCLEROSIS
     Route: 048
     Dates: start: 20130614

REACTIONS (8)
  - Bladder disorder [Unknown]
  - Alopecia [Unknown]
  - Urinary incontinence [Recovering/Resolving]
  - Multiple sclerosis relapse [Unknown]
  - Abasia [Unknown]
  - Pruritus [Unknown]
  - Condition aggravated [Unknown]
  - Chromaturia [Unknown]
